FAERS Safety Report 11475640 (Version 1)
Quarter: 2015Q3

REPORT INFORMATION
  Report Type: Report from Study
  Country: US (occurrence: US)
  Receive Date: 20150909
  Receipt Date: 20150909
  Transmission Date: 20151125
  Serious: Yes (Other)
  Sender: FDA-Public Use
  Company Number: US-AMGEN-USASL2015092171

PATIENT
  Age: 69 Year
  Sex: Female

DRUGS (3)
  1. ENBREL [Suspect]
     Active Substance: ETANERCEPT
     Indication: OSTEOARTHRITIS
  2. ENBREL [Suspect]
     Active Substance: ETANERCEPT
     Indication: RHEUMATOID ARTHRITIS
     Dosage: 50 MG, QWK
     Route: 065
     Dates: start: 2008
  3. ENBREL [Suspect]
     Active Substance: ETANERCEPT
     Indication: FIBROMYALGIA

REACTIONS (18)
  - Feeling abnormal [Unknown]
  - Spinal pain [Unknown]
  - Muscular weakness [Unknown]
  - Restlessness [Unknown]
  - Meniere^s disease [Unknown]
  - Eyelid ptosis [Unknown]
  - Dyspnoea [Unknown]
  - Memory impairment [Unknown]
  - Vision blurred [Unknown]
  - Urinary tract infection [Unknown]
  - Headache [Unknown]
  - Walking aid user [Unknown]
  - Dizziness [Unknown]
  - Haemarthrosis [Unknown]
  - Contusion [Unknown]
  - Fall [Unknown]
  - Rheumatoid arthritis [Unknown]
  - Gait disturbance [Unknown]
